FAERS Safety Report 26057594 (Version 1)
Quarter: 2025Q4

REPORT INFORMATION
  Report Type: Spontaneous
  Country: US (occurrence: None)
  Receive Date: 20251118
  Receipt Date: 20251118
  Transmission Date: 20260117
  Serious: No
  Sender: UCB
  Company Number: US-UCBSA-2025032759

PATIENT
  Age: 7 Year
  Sex: Male

DRUGS (16)
  1. LEVETIRACETAM [Suspect]
     Active Substance: LEVETIRACETAM
     Indication: Status epilepticus
  2. LEVETIRACETAM [Suspect]
     Active Substance: LEVETIRACETAM
     Indication: Off label use
  3. LACOSAMIDE [Suspect]
     Active Substance: LACOSAMIDE
     Indication: Status epilepticus
  4. LACOSAMIDE [Suspect]
     Active Substance: LACOSAMIDE
     Indication: Off label use
  5. BRIVARACETAM [Suspect]
     Active Substance: BRIVARACETAM
     Indication: Status epilepticus
  6. BRIVARACETAM [Suspect]
     Active Substance: BRIVARACETAM
     Indication: Off label use
  7. VALPROIC ACID [Concomitant]
     Active Substance: VALPROIC ACID
     Indication: Status epilepticus
  8. MIDAZOLAM [Concomitant]
     Active Substance: MIDAZOLAM
     Indication: Seizure
  9. MIDAZOLAM [Concomitant]
     Active Substance: MIDAZOLAM
     Indication: Status epilepticus
  10. PROPOFOL [Concomitant]
     Active Substance: PROPOFOL
     Indication: Seizure
  11. Phenopbarbital [Concomitant]
     Indication: Status epilepticus
  12. METHYLPREDNISOLONE [Concomitant]
     Active Substance: METHYLPREDNISOLONE
     Indication: Encephalitis autoimmune
  13. ANAKINRA [Concomitant]
     Active Substance: ANAKINRA
     Indication: Febrile infection-related epilepsy syndrome
  14. dexamethasone sodium  phosphate [Concomitant]
     Indication: Febrile infection-related epilepsy syndrome
     Dosage: AT 0.2MG/KG/DOSE DILUTED TO 5ML GIVEN THROUGH LUMBAR  PUNCTURE) WAS STARTED ON HD 25 TO COMPLETE SIX DOSES AT WEEKLY  INTERVALS.
  15. CLOBAZAM [Concomitant]
     Active Substance: CLOBAZAM
     Indication: Seizure
  16. PERAMPANEL [Concomitant]
     Active Substance: PERAMPANEL
     Indication: Seizure

REACTIONS (1)
  - No adverse event [Unknown]
